FAERS Safety Report 10527715 (Version 1)
Quarter: 2014Q4

REPORT INFORMATION
  Report Type: Spontaneous
  Country: US (occurrence: None)
  Receive Date: 20141016
  Receipt Date: 20141016
  Transmission Date: 20150528
  Serious: Yes (Hospitalization)
  Sender: FDA-Public Use
  Company Number: None

PATIENT
  Age: 6 Year
  Sex: Male
  Weight: 36.29 kg

DRUGS (1)
  1. THORAZINE [Suspect]
     Active Substance: CHLORPROMAZINE
     Route: 030
     Dates: start: 20130314, end: 20130317

REACTIONS (3)
  - Adverse event [None]
  - Incorrect dose administered [None]
  - Off label use [None]

NARRATIVE: CASE EVENT DATE: 20130314
